FAERS Safety Report 6306198-2 (Version None)
Quarter: 2009Q3

REPORT INFORMATION
  Report Type: 
  Country: None (occurrence: None)
  Receive Date: 20090810
  Receipt Date: 20090810
  Transmission Date: 20100115
  Serious: Yes (Hospitalization)
  Sender: FDA-Public Use
  Company Number: None

PATIENT
  Sex: Male
  Weight: 98.8388 kg

DRUGS (1)
  1. LISINOPRIL [Suspect]

REACTIONS (1)
  - RENAL FAILURE ACUTE [None]
